FAERS Safety Report 4738033-8 (Version None)
Quarter: 2005Q3

REPORT INFORMATION
  Report Type: 
  Country: None (occurrence: None)
  Receive Date: 20050809
  Receipt Date: 20050726
  Transmission Date: 20060218
  Serious: Yes (Other)
  Sender: FDA-Public Use
  Company Number: BR-GLAXOSMITHKLINE-A0568314A

PATIENT
  Age: 48 Year
  Sex: Female
  Weight: 62 kg

DRUGS (2)
  1. NIQUITIN 14MG [Suspect]
     Route: 062
     Dates: start: 20050725
  2. NIQUITIN 21MG [Suspect]
     Route: 062
     Dates: start: 20050717, end: 20050724

REACTIONS (6)
  - CRYING [None]
  - HYPOTENSION [None]
  - INTENTIONAL MISUSE [None]
  - IRRITABILITY [None]
  - NERVOUSNESS [None]
  - SYNCOPE [None]
